FAERS Safety Report 8781487 (Version 1)
Quarter: 2012Q4

REPORT INFORMATION
  Report Type: 
  Country: CA (occurrence: CA)
  Receive Date: 20120913
  Receipt Date: 20120913
  Transmission Date: 20130627
  Serious: Yes (Other)
  Sender: FDA-Public Use
  Company Number: CA-B.I. PHARMACEUTICALS,INC./RIDGEFIELD-2012-CN-01844CN

PATIENT
  Age: 41 Year
  Sex: Male

DRUGS (2)
  1. MIRAPEX [Suspect]
     Dosage: 4.5 mg
     Route: 048
  2. RIVOTRIL [Concomitant]

REACTIONS (3)
  - Activities of daily living impaired [Not Recovered/Not Resolved]
  - Asthenia [Not Recovered/Not Resolved]
  - Hypersomnia [Not Recovered/Not Resolved]
